FAERS Safety Report 17229681 (Version 2)
Quarter: 2020Q1

REPORT INFORMATION
  Report Type: Spontaneous
  Country: FR (occurrence: FR)
  Receive Date: 20200103
  Receipt Date: 20200128
  Transmission Date: 20200409
  Serious: Yes (Death, Other)
  Sender: FDA-Public Use
  Company Number: FR-PFIZER INC-2020001089

PATIENT
  Age: 85 Year
  Sex: Female

DRUGS (6)
  1. LEVOTHYROXINE. [Concomitant]
     Active Substance: LEVOTHYROXINE
     Dosage: 100 UG, UNK
  2. ELIQUIS [Concomitant]
     Active Substance: APIXABAN
     Dosage: 2.5 UNK, 2X/DAY
  3. CRESTOR [Concomitant]
     Active Substance: ROSUVASTATIN CALCIUM
     Dosage: 5, UNK
  4. DIFFU K [Concomitant]
     Active Substance: POTASSIUM CHLORIDE
     Dosage: UNK UNK, 3X/DAY
  5. VYNDAQEL [Suspect]
     Active Substance: TAFAMIDIS MEGLUMINE
     Dosage: 20 MG, DAILY
     Dates: end: 20191001
  6. AMIODARONE [Concomitant]
     Active Substance: AMIODARONE
     Dosage: 200 UNK, 1X/DAY

REACTIONS (2)
  - Erysipelas [Unknown]
  - Cardiac failure [Fatal]

NARRATIVE: CASE EVENT DATE: 201911
